FAERS Safety Report 7826659-4 (Version None)
Quarter: 2011Q4

REPORT INFORMATION
  Report Type: 
  Country: None (occurrence: None)
  Receive Date: 20111020
  Receipt Date: 20110825
  Transmission Date: 20120403
  Serious: No
  Sender: FDA-Public Use
  Company Number: US-MYLANLABS-2011S1017942

PATIENT
  Sex: Female

DRUGS (5)
  1. TOPIRAMATE [Concomitant]
     Indication: WEIGHT DECREASED
     Route: 048
  2. VENLAFAXINE [Concomitant]
     Indication: DEPRESSION
     Route: 048
  3. THYROID TAB [Concomitant]
     Indication: HYPOTHYROIDISM
     Route: 048
  4. TRAZODONE HYDROCHLORIDE [Concomitant]
     Indication: INSOMNIA
     Route: 048
  5. BUPROPION HYDROCHLORIDE [Suspect]
     Indication: DEPRESSION
     Route: 048
     Dates: start: 20110501

REACTIONS (2)
  - ALOPECIA [None]
  - HYPERHIDROSIS [None]
